FAERS Safety Report 8008756-6 (Version None)
Quarter: 2011Q4

REPORT INFORMATION
  Report Type: 
  Country: None (occurrence: None)
  Receive Date: 20111227
  Receipt Date: 20111221
  Transmission Date: 20120403
  Serious: Yes (Death, Other)
  Sender: FDA-Public Use
  Company Number: US-CELGENEUS-163-21880-11092592

PATIENT
  Sex: Female

DRUGS (10)
  1. ZOMETA [Concomitant]
     Route: 065
  2. PHENERGAN [Concomitant]
     Dosage: 25 MILLIGRAM
     Route: 065
  3. RESTORIL [Concomitant]
     Dosage: 30 MILLIGRAM
     Route: 065
  4. ASPIRIN [Concomitant]
     Dosage: 325 MILLIGRAM
     Route: 065
  5. LOTREL [Concomitant]
     Dosage: 10 MILLIGRAM
     Route: 065
  6. VEGETABLE LAXATIVE [Concomitant]
     Route: 065
  7. LORCET-HD [Concomitant]
     Dosage: 10/650 MG
     Route: 065
  8. REVLIMID [Suspect]
     Dosage: 25 MILLIGRAM
     Route: 048
     Dates: start: 20110512, end: 20110901
  9. FENTANYL [Concomitant]
     Dosage: 50 MICROGRAM
     Route: 062
  10. STOOL SOFTENER [Concomitant]
     Dosage: 4 CAPSULE
     Route: 048

REACTIONS (3)
  - SEPTIC SHOCK [None]
  - PNEUMONIA PNEUMOCOCCAL [None]
  - PANCYTOPENIA [None]
